FAERS Safety Report 14899675 (Version 1)
Quarter: 2018Q2

REPORT INFORMATION
  Report Type: Spontaneous
  Country: US (occurrence: US)
  Receive Date: 20180516
  Receipt Date: 20180516
  Transmission Date: 20180711
  Serious: Yes (Hospitalization)
  Sender: FDA-Public Use
  Company Number: US-B.I. PHARMACEUTICALS,INC./RIDGEFIELD-2018-BI-026105

PATIENT
  Age: 74 Year
  Sex: Male

DRUGS (5)
  1. XOPENEX [Concomitant]
     Active Substance: LEVALBUTEROL HYDROCHLORIDE
     Indication: CHRONIC OBSTRUCTIVE PULMONARY DISEASE
     Dosage: PRN;  FORMULATION: INHALATION SOLUTION;
     Route: 055
  2. PREDNISONE. [Concomitant]
     Active Substance: PREDNISONE
     Indication: CROHN^S DISEASE
     Dosage: ONCE DAILY;  FORM STRENGTH: 10MG; FORMULATION: TABLET
     Route: 048
     Dates: start: 2007
  3. SYMBICORT [Concomitant]
     Active Substance: BUDESONIDE\FORMOTEROL FUMARATE DIHYDRATE
     Indication: CHRONIC OBSTRUCTIVE PULMONARY DISEASE
     Dosage: BID;  FORM STRENGTH: 160/4.5MCG; FORMULATION: INHALATION SPRAY
     Route: 055
  4. SPIRIVA RESPIMAT [Suspect]
     Active Substance: TIOTROPIUM BROMIDE
     Indication: CHRONIC OBSTRUCTIVE PULMONARY DISEASE
     Dosage: 2 PUFFS ONCE DAILY;  FORMULATION: INHALATION SPRAY, ACTION(S) TAKEN WITH PRODUCT: DOSE NOT CHANGED
     Route: 055
     Dates: start: 2013
  5. AMIODARONE [Concomitant]
     Active Substance: AMIODARONE
     Indication: ATRIAL FIBRILLATION
     Dosage: 1/2 TWICE DAILY;  FORM STRENGTH: 200MG; FORMULATION: TABLET
     Route: 048

REACTIONS (2)
  - Pneumonia [Recovered/Resolved]
  - Off label use [Unknown]

NARRATIVE: CASE EVENT DATE: 201804
